FAERS Safety Report 5370036-5 (Version None)
Quarter: 2007Q2

REPORT INFORMATION
  Report Type: 
  Country: None (occurrence: None)
  Receive Date: 20070626
  Receipt Date: 20070614
  Transmission Date: 20071010
  Serious: Yes (Hospitalization)
  Sender: FDA-Public Use
  Company Number: US-JNJFOC-20070500981

PATIENT
  Sex: Female
  Weight: 76.2 kg

DRUGS (7)
  1. REMICADE [Suspect]
     Indication: PSORIATIC ARTHROPATHY
     Route: 042
  2. REMICADE [Suspect]
     Indication: RHEUMATOID ARTHRITIS
     Route: 042
  3. BENICAR [Concomitant]
  4. TOPROL-XL [Concomitant]
  5. UNKNOWN MEDICATION [Concomitant]
     Indication: DIABETES MELLITUS
  6. ASPIRIN [Concomitant]
  7. M.V.I. [Concomitant]

REACTIONS (2)
  - STREPTOCOCCAL BACTERAEMIA [None]
  - WEIGHT DECREASED [None]
